FAERS Safety Report 8654203 (Version 3)
Quarter: 2013Q4

REPORT INFORMATION
  Report Type: Spontaneous
  Country: JP (occurrence: JP)
  Receive Date: 20120709
  Receipt Date: 20131104
  Transmission Date: 20140711
  Serious: Yes (Hospitalization, Other)
  Sender: FDA-Public Use
  Company Number: PHHY2008JP10678

PATIENT
  Age: 35 Year
  Sex: Male
  Weight: 64 kg

DRUGS (9)
  1. SIMULECT [Suspect]
     Indication: RENAL TRANSPLANT
     Dosage: 40 MG, (20MG + 20MG)
     Route: 042
     Dates: start: 20070516, end: 20070520
  2. NEORAL [Suspect]
     Indication: RENAL TRANSPLANT
     Dosage: 500 MG, UNK
     Route: 048
     Dates: start: 20070513, end: 20070523
  3. CERTICAN [Suspect]
     Indication: RENAL TRANSPLANT
     Dosage: UNK
     Route: 048
  4. CELLCEPT [Suspect]
     Indication: RENAL TRANSPLANT
     Dosage: 1500 MG PER DAY
     Route: 048
     Dates: start: 20070517
  5. SANDIMMUN [Concomitant]
     Indication: RENAL TRANSPLANT
     Dosage: 166 MG, UNK
     Route: 042
     Dates: start: 20070516, end: 20070516
  6. DIOVAN [Concomitant]
     Indication: HYPERTENSION
     Dosage: 80 MG, UNK
     Route: 048
     Dates: start: 20070820
  7. SOLU-MEDROL [Concomitant]
     Indication: RENAL TRANSPLANT
     Dosage: 250 MG, UNK
     Route: 042
     Dates: start: 20070516, end: 20070516
  8. PREDONINE [Concomitant]
     Indication: RENAL TRANSPLANT
     Dosage: 50 MG, UNK
     Route: 042
     Dates: start: 20070517, end: 20070522
  9. PREDONINE [Concomitant]
     Dosage: 30 MG, UNK
     Route: 048
     Dates: start: 20070523

REACTIONS (10)
  - Blood uric acid increased [Recovering/Resolving]
  - Cytomegalovirus infection [Recovered/Resolved]
  - Cytomegalovirus test positive [Recovered/Resolved]
  - Pyrexia [Recovering/Resolving]
  - Post transplant lymphoproliferative disorder [Recovering/Resolving]
  - Primary mediastinal large B-cell lymphoma [Unknown]
  - Hepatic neoplasm [Unknown]
  - Epstein-Barr virus infection [Unknown]
  - Hepatitis B antibody positive [Unknown]
  - Hypertension [Recovering/Resolving]
